FAERS Safety Report 7964524-2 (Version None)
Quarter: 2011Q4

REPORT INFORMATION
  Report Type: 
  Country: None (occurrence: None)
  Receive Date: 20111208
  Receipt Date: 20111123
  Transmission Date: 20120403
  Serious: Yes (Hospitalization)
  Sender: FDA-Public Use
  Company Number: PHFR2011IE05181

PATIENT
  Sex: Male

DRUGS (8)
  1. CLOZARIL [Suspect]
     Indication: SCHIZOPHRENIA
     Dosage: 650 MG, DAILY
     Route: 048
     Dates: start: 20090311
  2. DIAZEPAM [Concomitant]
     Dosage: 5 MG IN MORNING, 2.5 MG IN NOON AND 5 MG AT NIGHT
     Route: 048
  3. SERTRALINE HYDROCHLORIDE [Concomitant]
     Dosage: 50 MG MORNING
     Route: 048
  4. AMISULPRIDE [Concomitant]
     Dosage: 50 MG IN MORNING AND 100 MG AT NIGHT
     Route: 048
  5. OMACOR [Concomitant]
     Dosage: 1 G, BID
     Route: 048
  6. ATENOLOL [Concomitant]
     Dosage: 100 MG AT NIGHT
     Route: 048
  7. VALPROATE SODIUM [Concomitant]
     Dosage: 200 MG, QD
     Route: 048
  8. PANTOPRAZOLE [Concomitant]
     Dosage: 40 MG, QD
     Route: 048

REACTIONS (3)
  - WHITE BLOOD CELL COUNT INCREASED [None]
  - NEUTROPHIL COUNT INCREASED [None]
  - GASTRITIS [None]
